FAERS Safety Report 21341633 (Version 1)
Quarter: 2022Q3

REPORT INFORMATION
  Report Type: Spontaneous
  Country: US (occurrence: None)
  Receive Date: 20220915
  Receipt Date: 20220915
  Transmission Date: 20221027
  Serious: Yes (Death)
  Sender: FDA-Public Use
  Company Number: None

PATIENT
  Age: 60 Year
  Sex: Male
  Weight: 123.2 kg

DRUGS (9)
  1. LENALIDOMIDE [Suspect]
     Active Substance: LENALIDOMIDE
     Indication: Plasmacytoma
     Dosage: OTHER FREQUENCY : 14D OF 21 D;?
     Route: 048
     Dates: start: 202205
  2. ALBUTEROL [Concomitant]
     Active Substance: ALBUTEROL
  3. ASPIRIN [Concomitant]
  4. ADODART [Concomitant]
  5. HYDROCODONE-ACETAMINOPHEN [Concomitant]
  6. LASIX [Concomitant]
     Active Substance: FUROSEMIDE
  7. MOTELUKAST [Concomitant]
  8. NORCO [Concomitant]
     Active Substance: ACETAMINOPHEN\HYDROCODONE BITARTRATE
  9. PROCHLORPERAZINE [Concomitant]

REACTIONS (1)
  - COVID-19 [None]
